FAERS Safety Report 5292551-5 (Version None)
Quarter: 2007Q2

REPORT INFORMATION
  Report Type: 
  Country: None (occurrence: None)
  Receive Date: 20070410
  Receipt Date: 20070405
  Transmission Date: 20071010
  Serious: Yes (Hospitalization, Other)
  Sender: FDA-Public Use
  Company Number: US-MERCK-0704USA00938

PATIENT
  Age: 62 Year
  Sex: Male

DRUGS (8)
  1. ZOCOR [Suspect]
     Route: 048
     Dates: start: 20050101
  2. GLUCOPHAGE [Concomitant]
     Route: 065
  3. INDERAL LA [Concomitant]
     Route: 065
  4. NEURONTIN [Concomitant]
     Route: 065
  5. KLONOPIN [Concomitant]
     Route: 065
  6. PLAVIX [Concomitant]
     Route: 065
  7. TOPROL-XL [Concomitant]
     Route: 065
  8. DIOVAN [Concomitant]
     Route: 065

REACTIONS (1)
  - CEREBROVASCULAR ACCIDENT [None]
